FAERS Safety Report 10253057 (Version 1)
Quarter: 2014Q2

REPORT INFORMATION
  Report Type: Spontaneous
  Country: US (occurrence: None)
  Receive Date: 20140619
  Receipt Date: 20140619
  Transmission Date: 20141212
  Serious: Yes (Death)
  Sender: FDA-Public Use
  Company Number: None

PATIENT
  Age: 85 Year
  Sex: Male

DRUGS (1)
  1. RITUXIMAB 10 MG/ML GENENTECH USA [Suspect]
     Indication: HAIRY CELL LEUKAEMIA
     Dosage: 375 MG/M2 WEEKLY X 4 WEEKS INTRAVEOUS
     Route: 042
     Dates: start: 20140613, end: 20140613

REACTIONS (12)
  - Chills [None]
  - Hypotension [None]
  - Unresponsive to stimuli [None]
  - Tremor [None]
  - Oxygen saturation decreased [None]
  - Confusional state [None]
  - Cerebrovascular accident [None]
  - Cerebral haemorrhage [None]
  - Brain midline shift [None]
  - Brain herniation [None]
  - Thrombocytopenia [None]
  - Infusion related reaction [None]
